FAERS Safety Report 8358822-0 (Version None)
Quarter: 2012Q2

REPORT INFORMATION
  Report Type: 
  Country: None (occurrence: None)
  Receive Date: 20120515
  Receipt Date: 20120509
  Transmission Date: 20120825
  Serious: Yes (Other)
  Sender: FDA-Public Use
  Company Number: PHHY2012PT039762

PATIENT
  Age: 53 Year
  Sex: Female

DRUGS (1)
  1. DICLOFENAC SODIUM [Suspect]
     Indication: MUSCULOSKELETAL PAIN

REACTIONS (6)
  - PRURITUS [None]
  - PEMPHIGOID [None]
  - DERMATITIS BULLOUS [None]
  - LICHEN PLANUS [None]
  - PAPULE [None]
  - SKIN PLAQUE [None]
